FAERS Safety Report 4847265-X (Version None)
Quarter: 2005Q4

REPORT INFORMATION
  Report Type: 
  Country: None (occurrence: None)
  Receive Date: 20051207
  Receipt Date: 20051123
  Transmission Date: 20060501
  Serious: Yes (Other)
  Sender: FDA-Public Use
  Company Number: DE-GLAXOSMITHKLINE-D0048107A

PATIENT
  Age: 30 Year
  Sex: Male

DRUGS (1)
  1. ARIXTRA [Suspect]
     Route: 065
     Dates: start: 20051114, end: 20051128

REACTIONS (1)
  - LEUKOCYTOSIS [None]
